FAERS Safety Report 4416295-4 (Version None)
Quarter: 2004Q3

REPORT INFORMATION
  Report Type: 
  Country: None (occurrence: None)
  Receive Date: 20040803
  Receipt Date: 20040727
  Transmission Date: 20050211
  Serious: Yes (Life-Threatening, Other)
  Sender: FDA-Public Use
  Company Number: USA-2004-0016192

PATIENT
  Age: 48 Year
  Sex: Male

DRUGS (4)
  1. OXYCONTIN [Suspect]
     Indication: PAIN
     Dosage: 160 MG, Q12H, ORAL
     Route: 048
  2. EFFEXOR [Concomitant]
  3. PREDNISONE [Concomitant]
  4. NAPROSYN [Concomitant]

REACTIONS (2)
  - MYOCARDIAL INFARCTION [None]
  - SEDATION [None]
